FAERS Safety Report 4728220-7 (Version None)
Quarter: 2005Q3

REPORT INFORMATION
  Report Type: 
  Country: None (occurrence: None)
  Receive Date: 20050728
  Receipt Date: 20050728
  Transmission Date: 20060218
  Serious: Yes (Disabling)
  Sender: FDA-Public Use
  Company Number: None

PATIENT
  Age: 61 Year
  Sex: Female
  Weight: 68.0396 kg

DRUGS (1)
  1. GENTAMIACIN     ?       ? [Suspect]
     Indication: NOCARDIOSIS
     Dosage: IV
     Route: 042

REACTIONS (3)
  - BALANCE DISORDER [None]
  - OSCILLOPSIA [None]
  - VESTIBULAR DISORDER [None]
